FAERS Safety Report 9162217 (Version 1)
Quarter: 2013Q1

REPORT INFORMATION
  Report Type: Spontaneous
  Country: US (occurrence: US)
  Receive Date: 20130314
  Receipt Date: 20130314
  Transmission Date: 20140127
  Serious: No
  Sender: FDA-Public Use
  Company Number: US-BAYER-2013-010847

PATIENT
  Age: 65 Year
  Sex: Female

DRUGS (13)
  1. CIPRO [Suspect]
  2. GABAPENTIN [Concomitant]
     Dosage: UNK
     Route: 048
  3. LYRICA [Concomitant]
     Dosage: 3 DF, BID
     Route: 048
  4. DILAUDID [Concomitant]
     Dosage: 4 MG, EVERY 4- 6 HOURS
     Route: 048
  5. FOLIC ACID [Concomitant]
     Dosage: 1 MG, QD
     Route: 048
  6. FUROSEMIDE [Concomitant]
     Dosage: 1 DF, QD
     Route: 048
  7. CELLCEPT [Concomitant]
     Dosage: 6 DF, BID
     Route: 048
  8. CRESTOR [Concomitant]
     Dosage: 1 DF, QD
     Route: 048
  9. PLAVIX [Concomitant]
     Dosage: 1 DF, QD
     Route: 048
  10. GLYBURIDE [Concomitant]
     Dosage: 3 DF, TID
     Route: 048
  11. LANTUS [Concomitant]
  12. SYNTHROID [Concomitant]
  13. NIFEDIPINE [Concomitant]

REACTIONS (1)
  - Drug hypersensitivity [None]
